FAERS Safety Report 17073656 (Version 2)
Quarter: 2019Q4

REPORT INFORMATION
  Report Type: Spontaneous
  Country: RO (occurrence: RO)
  Receive Date: 20191126
  Receipt Date: 20191212
  Transmission Date: 20200122
  Serious: Yes (Other)
  Sender: FDA-Public Use
  Company Number: RO-ASTRAZENECA-2019SF65123

PATIENT
  Age: 25057 Day
  Sex: Female
  Weight: 70 kg

DRUGS (3)
  1. METFORMIN [Concomitant]
     Active Substance: METFORMIN HYDROCHLORIDE
  2. DIAPREL [Concomitant]
     Active Substance: GLICLAZIDE
  3. QTERN [Suspect]
     Active Substance: DAPAGLIFLOZIN\SAXAGLIPTIN HYDROCHLORIDE
     Indication: TYPE 2 DIABETES MELLITUS
     Dosage: 5 MG SAXAGLIPTIN / 10 MG DAPAGLIFLOZIN, EVERY DAY
     Route: 048
     Dates: start: 20191010

REACTIONS (2)
  - Oropharyngeal blistering [Recovered/Resolved]
  - Lip swelling [Recovered/Resolved]

NARRATIVE: CASE EVENT DATE: 20191115
